FAERS Safety Report 25555236 (Version 1)
Quarter: 2025Q3

REPORT INFORMATION
  Report Type: Spontaneous
  Country: GB (occurrence: GB)
  Receive Date: 20250715
  Receipt Date: 20250715
  Transmission Date: 20251020
  Serious: Yes (Other)
  Sender: MYLAN
  Company Number: GB-MHRA-TPP14319483C562655YC1752077284454

PATIENT
  Age: 54 Year
  Sex: Male
  Weight: 103 kg

DRUGS (80)
  1. AMLODIPINE [Suspect]
     Active Substance: AMLODIPINE BESYLATE
     Indication: Ill-defined disorder
     Dosage: 1 DOSAGE FORM, QD (TAKE ONE DAILY FOR ONE MONTH)
     Dates: start: 20250319
  2. AMLODIPINE [Suspect]
     Active Substance: AMLODIPINE BESYLATE
     Dosage: 1 DOSAGE FORM, QD (TAKE ONE DAILY FOR ONE MONTH)
     Route: 065
     Dates: start: 20250319
  3. AMLODIPINE [Suspect]
     Active Substance: AMLODIPINE BESYLATE
     Dosage: 1 DOSAGE FORM, QD (TAKE ONE DAILY FOR ONE MONTH)
     Route: 065
     Dates: start: 20250319
  4. AMLODIPINE [Suspect]
     Active Substance: AMLODIPINE BESYLATE
     Dosage: 1 DOSAGE FORM, QD (TAKE ONE DAILY FOR ONE MONTH)
     Dates: start: 20250319
  5. ASPIRIN [Concomitant]
     Active Substance: ASPIRIN
     Indication: Ill-defined disorder
     Dosage: 1 DOSAGE FORM, QD (TAKE ONE DAILY TO THIN YOUR BLOOD)
     Dates: start: 20250319
  6. ASPIRIN [Concomitant]
     Active Substance: ASPIRIN
     Indication: Anticoagulant therapy
     Dosage: 1 DOSAGE FORM, QD (TAKE ONE DAILY TO THIN YOUR BLOOD)
     Route: 065
     Dates: start: 20250319
  7. ASPIRIN [Concomitant]
     Active Substance: ASPIRIN
     Dosage: 1 DOSAGE FORM, QD (TAKE ONE DAILY TO THIN YOUR BLOOD)
     Route: 065
     Dates: start: 20250319
  8. ASPIRIN [Concomitant]
     Active Substance: ASPIRIN
     Dosage: 1 DOSAGE FORM, QD (TAKE ONE DAILY TO THIN YOUR BLOOD)
     Dates: start: 20250319
  9. CHLORAMPHENICOL [Concomitant]
     Active Substance: CHLORAMPHENICOL
     Indication: Ill-defined disorder
     Dosage: UNK, TID (1CM BOTH EYES THREE TIMES DAILY FOR BLEPHARITIS)
     Dates: start: 20250319
  10. CHLORAMPHENICOL [Concomitant]
     Active Substance: CHLORAMPHENICOL
     Indication: Blepharitis
     Dosage: UNK, TID (1CM BOTH EYES THREE TIMES DAILY FOR BLEPHARITIS)
     Route: 065
     Dates: start: 20250319
  11. CHLORAMPHENICOL [Concomitant]
     Active Substance: CHLORAMPHENICOL
     Dosage: UNK, TID (1CM BOTH EYES THREE TIMES DAILY FOR BLEPHARITIS)
     Route: 065
     Dates: start: 20250319
  12. CHLORAMPHENICOL [Concomitant]
     Active Substance: CHLORAMPHENICOL
     Dosage: UNK, TID (1CM BOTH EYES THREE TIMES DAILY FOR BLEPHARITIS)
     Dates: start: 20250319
  13. COLCHICINE [Concomitant]
     Active Substance: COLCHICINE
     Indication: Ill-defined disorder
     Dosage: 1 DOSAGE FORM, BID (TAKE ONE TWICE DAILY FOR GOUT ATTACK)
     Dates: start: 20250319
  14. COLCHICINE [Concomitant]
     Active Substance: COLCHICINE
     Indication: Gout
     Dosage: 1 DOSAGE FORM, BID (TAKE ONE TWICE DAILY FOR GOUT ATTACK)
     Route: 065
     Dates: start: 20250319
  15. COLCHICINE [Concomitant]
     Active Substance: COLCHICINE
     Dosage: 1 DOSAGE FORM, BID (TAKE ONE TWICE DAILY FOR GOUT ATTACK)
     Route: 065
     Dates: start: 20250319
  16. COLCHICINE [Concomitant]
     Active Substance: COLCHICINE
     Dosage: 1 DOSAGE FORM, BID (TAKE ONE TWICE DAILY FOR GOUT ATTACK)
     Dates: start: 20250319
  17. FEBUXOSTAT [Concomitant]
     Active Substance: FEBUXOSTAT
     Indication: Ill-defined disorder
     Dosage: 1 DOSAGE FORM, QD (TAKE ONE ONCE DAILY FOR GOUT PREVENTION)
     Dates: start: 20250319
  18. FEBUXOSTAT [Concomitant]
     Active Substance: FEBUXOSTAT
     Indication: Prophylaxis
     Dosage: 1 DOSAGE FORM, QD (TAKE ONE ONCE DAILY FOR GOUT PREVENTION)
     Route: 065
     Dates: start: 20250319
  19. FEBUXOSTAT [Concomitant]
     Active Substance: FEBUXOSTAT
     Dosage: 1 DOSAGE FORM, QD (TAKE ONE ONCE DAILY FOR GOUT PREVENTION)
     Route: 065
     Dates: start: 20250319
  20. FEBUXOSTAT [Concomitant]
     Active Substance: FEBUXOSTAT
     Dosage: 1 DOSAGE FORM, QD (TAKE ONE ONCE DAILY FOR GOUT PREVENTION)
     Dates: start: 20250319
  21. FLUCLOXACILLIN [Concomitant]
     Active Substance: FLUCLOXACILLIN
     Indication: Ill-defined disorder
     Dosage: 1 DOSAGE FORM, QD (TAKE ONE DAILY WITH INFECTED FINGER ULCERATION)
     Dates: start: 20250319
  22. FLUCLOXACILLIN [Concomitant]
     Active Substance: FLUCLOXACILLIN
     Indication: Ulcer
     Dosage: 1 DOSAGE FORM, QD (TAKE ONE DAILY WITH INFECTED FINGER ULCERATION)
     Route: 065
     Dates: start: 20250319
  23. FLUCLOXACILLIN [Concomitant]
     Active Substance: FLUCLOXACILLIN
     Dosage: 1 DOSAGE FORM, QD (TAKE ONE DAILY WITH INFECTED FINGER ULCERATION)
     Route: 065
     Dates: start: 20250319
  24. FLUCLOXACILLIN [Concomitant]
     Active Substance: FLUCLOXACILLIN
     Dosage: 1 DOSAGE FORM, QD (TAKE ONE DAILY WITH INFECTED FINGER ULCERATION)
     Dates: start: 20250319
  25. FLURANDRENOLIDE [Concomitant]
     Active Substance: FLURANDRENOLIDE
     Indication: Ill-defined disorder
  26. FLURANDRENOLIDE [Concomitant]
     Active Substance: FLURANDRENOLIDE
     Route: 065
  27. FLURANDRENOLIDE [Concomitant]
     Active Substance: FLURANDRENOLIDE
     Route: 065
  28. FLURANDRENOLIDE [Concomitant]
     Active Substance: FLURANDRENOLIDE
  29. NITROGLYCERIN [Concomitant]
     Active Substance: NITROGLYCERIN
     Indication: Ill-defined disorder
     Dosage: UNK, QD (APPLY 1/4 PATCH DAILY TO YOUR ACHILLES TENDON F)
     Dates: start: 20250319
  30. NITROGLYCERIN [Concomitant]
     Active Substance: NITROGLYCERIN
     Indication: Tendonitis
     Dosage: UNK, QD (APPLY 1/4 PATCH DAILY TO YOUR ACHILLES TENDON F)
     Route: 065
     Dates: start: 20250319
  31. NITROGLYCERIN [Concomitant]
     Active Substance: NITROGLYCERIN
     Dosage: UNK, QD (APPLY 1/4 PATCH DAILY TO YOUR ACHILLES TENDON F)
     Route: 065
     Dates: start: 20250319
  32. NITROGLYCERIN [Concomitant]
     Active Substance: NITROGLYCERIN
     Dosage: UNK, QD (APPLY 1/4 PATCH DAILY TO YOUR ACHILLES TENDON F)
     Dates: start: 20250319
  33. IVERMECTIN [Concomitant]
     Active Substance: IVERMECTIN
     Indication: Ill-defined disorder
     Dosage: UNK QD (APPLY DAILY FOR ROSACEA AS ADVISED BY DERMATOLOGY)
     Dates: start: 20250319
  34. IVERMECTIN [Concomitant]
     Active Substance: IVERMECTIN
     Indication: Rosacea
     Dosage: UNK QD (APPLY DAILY FOR ROSACEA AS ADVISED BY DERMATOLOGY)
     Route: 065
     Dates: start: 20250319
  35. IVERMECTIN [Concomitant]
     Active Substance: IVERMECTIN
     Dosage: UNK QD (APPLY DAILY FOR ROSACEA AS ADVISED BY DERMATOLOGY)
     Route: 065
     Dates: start: 20250319
  36. IVERMECTIN [Concomitant]
     Active Substance: IVERMECTIN
     Dosage: UNK QD (APPLY DAILY FOR ROSACEA AS ADVISED BY DERMATOLOGY)
     Dates: start: 20250319
  37. KETOCONAZOLE [Concomitant]
     Active Substance: KETOCONAZOLE
     Indication: Ill-defined disorder
     Dosage: 2 DOSAGE FORM, QW (WASH HAIR WITH TWICE WEEKLY FOR SCALP DERMATITIS)
     Dates: start: 20250319
  38. KETOCONAZOLE [Concomitant]
     Active Substance: KETOCONAZOLE
     Indication: Dermatitis
     Dosage: 2 DOSAGE FORM, QW (WASH HAIR WITH TWICE WEEKLY FOR SCALP DERMATITIS)
     Route: 065
     Dates: start: 20250319
  39. KETOCONAZOLE [Concomitant]
     Active Substance: KETOCONAZOLE
     Dosage: 2 DOSAGE FORM, QW (WASH HAIR WITH TWICE WEEKLY FOR SCALP DERMATITIS)
     Route: 065
     Dates: start: 20250319
  40. KETOCONAZOLE [Concomitant]
     Active Substance: KETOCONAZOLE
     Dosage: 2 DOSAGE FORM, QW (WASH HAIR WITH TWICE WEEKLY FOR SCALP DERMATITIS)
     Dates: start: 20250319
  41. POLYETHYLENE GLYCOL 3350\POTASSIUM CHLORIDE\SODIUM BICARBONATE\SODIUM [Concomitant]
     Active Substance: POLYETHYLENE GLYCOL 3350\POTASSIUM CHLORIDE\SODIUM BICARBONATE\SODIUM CHLORIDE
     Indication: Ill-defined disorder
  42. POLYETHYLENE GLYCOL 3350\POTASSIUM CHLORIDE\SODIUM BICARBONATE\SODIUM [Concomitant]
     Active Substance: POLYETHYLENE GLYCOL 3350\POTASSIUM CHLORIDE\SODIUM BICARBONATE\SODIUM CHLORIDE
     Indication: Constipation prophylaxis
     Route: 065
  43. POLYETHYLENE GLYCOL 3350\POTASSIUM CHLORIDE\SODIUM BICARBONATE\SODIUM [Concomitant]
     Active Substance: POLYETHYLENE GLYCOL 3350\POTASSIUM CHLORIDE\SODIUM BICARBONATE\SODIUM CHLORIDE
     Route: 065
  44. POLYETHYLENE GLYCOL 3350\POTASSIUM CHLORIDE\SODIUM BICARBONATE\SODIUM [Concomitant]
     Active Substance: POLYETHYLENE GLYCOL 3350\POTASSIUM CHLORIDE\SODIUM BICARBONATE\SODIUM CHLORIDE
  45. MOMETASONE [Concomitant]
     Active Substance: MOMETASONE
     Indication: Ill-defined disorder
     Dosage: UNK, QD (APPLY DAILY WHEN NEEDED TO FINGERS)
     Dates: start: 20250319
  46. MOMETASONE [Concomitant]
     Active Substance: MOMETASONE
     Dosage: UNK, QD (APPLY DAILY WHEN NEEDED TO FINGERS)
     Route: 065
     Dates: start: 20250319
  47. MOMETASONE [Concomitant]
     Active Substance: MOMETASONE
     Dosage: UNK, QD (APPLY DAILY WHEN NEEDED TO FINGERS)
     Route: 065
     Dates: start: 20250319
  48. MOMETASONE [Concomitant]
     Active Substance: MOMETASONE
     Dosage: UNK, QD (APPLY DAILY WHEN NEEDED TO FINGERS)
     Dates: start: 20250319
  49. NAPROXEN [Concomitant]
     Active Substance: NAPROXEN
     Indication: Ill-defined disorder
     Dosage: 1 DOSAGE FORM, BID (TAKE ONE TWICE DAILY WHEN REQUIRED FOR CHILLBLA)
     Dates: start: 20250319
  50. NAPROXEN [Concomitant]
     Active Substance: NAPROXEN
     Indication: Chillblains
     Dosage: 1 DOSAGE FORM, BID (TAKE ONE TWICE DAILY WHEN REQUIRED FOR CHILLBLA)
     Route: 065
     Dates: start: 20250319
  51. NAPROXEN [Concomitant]
     Active Substance: NAPROXEN
     Dosage: 1 DOSAGE FORM, BID (TAKE ONE TWICE DAILY WHEN REQUIRED FOR CHILLBLA)
     Route: 065
     Dates: start: 20250319
  52. NAPROXEN [Concomitant]
     Active Substance: NAPROXEN
     Dosage: 1 DOSAGE FORM, BID (TAKE ONE TWICE DAILY WHEN REQUIRED FOR CHILLBLA)
     Dates: start: 20250319
  53. OMEPRAZOLE [Concomitant]
     Active Substance: OMEPRAZOLE
     Indication: Ill-defined disorder
     Dosage: 1 DOSAGE FORM, QD (TAKE ONE DAILY TO PROTECT YOUR STOMACH WHILST T.)
     Dates: start: 20250319
  54. OMEPRAZOLE [Concomitant]
     Active Substance: OMEPRAZOLE
     Indication: Prophylaxis
     Dosage: 1 DOSAGE FORM, QD (TAKE ONE DAILY TO PROTECT YOUR STOMACH WHILST T.)
     Route: 065
     Dates: start: 20250319
  55. OMEPRAZOLE [Concomitant]
     Active Substance: OMEPRAZOLE
     Dosage: 1 DOSAGE FORM, QD (TAKE ONE DAILY TO PROTECT YOUR STOMACH WHILST T.)
     Route: 065
     Dates: start: 20250319
  56. OMEPRAZOLE [Concomitant]
     Active Substance: OMEPRAZOLE
     Dosage: 1 DOSAGE FORM, QD (TAKE ONE DAILY TO PROTECT YOUR STOMACH WHILST T.)
     Dates: start: 20250319
  57. SILDENAFIL [Concomitant]
     Active Substance: SILDENAFIL
     Indication: Ill-defined disorder
     Dosage: 1 DOSAGE FORM, TID (TAKE ONE TO BE TAKEN THREE TIMES DAILY FOR CHIL)
     Dates: start: 20250319
  58. SILDENAFIL [Concomitant]
     Active Substance: SILDENAFIL
     Indication: Chillblains
     Dosage: 1 DOSAGE FORM, TID (TAKE ONE TO BE TAKEN THREE TIMES DAILY FOR CHIL)
     Route: 065
     Dates: start: 20250319
  59. SILDENAFIL [Concomitant]
     Active Substance: SILDENAFIL
     Dosage: 1 DOSAGE FORM, TID (TAKE ONE TO BE TAKEN THREE TIMES DAILY FOR CHIL)
     Route: 065
     Dates: start: 20250319
  60. SILDENAFIL [Concomitant]
     Active Substance: SILDENAFIL
     Dosage: 1 DOSAGE FORM, TID (TAKE ONE TO BE TAKEN THREE TIMES DAILY FOR CHIL)
     Dates: start: 20250319
  61. SOOLANTRA [Concomitant]
     Active Substance: IVERMECTIN
     Indication: Ill-defined disorder
     Dosage: UNK, QD (APPLY DAILY AS ADVISED BY DERMATOLOGY FOR YOUR)
     Dates: start: 20250319
  62. SOOLANTRA [Concomitant]
     Active Substance: IVERMECTIN
     Dosage: UNK, QD (APPLY DAILY AS ADVISED BY DERMATOLOGY FOR YOUR)
     Route: 065
     Dates: start: 20250319
  63. SOOLANTRA [Concomitant]
     Active Substance: IVERMECTIN
     Dosage: UNK, QD (APPLY DAILY AS ADVISED BY DERMATOLOGY FOR YOUR)
     Route: 065
     Dates: start: 20250319
  64. SOOLANTRA [Concomitant]
     Active Substance: IVERMECTIN
     Dosage: UNK, QD (APPLY DAILY AS ADVISED BY DERMATOLOGY FOR YOUR)
     Dates: start: 20250319
  65. TACROLIMUS [Concomitant]
     Active Substance: TACROLIMUS
     Indication: Ill-defined disorder
     Dosage: UNK UNK, PM (APPLY AT NIGHT TO FACE)
     Dates: start: 20250319
  66. TACROLIMUS [Concomitant]
     Active Substance: TACROLIMUS
     Dosage: UNK UNK, PM (APPLY AT NIGHT TO FACE)
     Route: 065
     Dates: start: 20250319
  67. TACROLIMUS [Concomitant]
     Active Substance: TACROLIMUS
     Dosage: UNK UNK, PM (APPLY AT NIGHT TO FACE)
     Route: 065
     Dates: start: 20250319
  68. TACROLIMUS [Concomitant]
     Active Substance: TACROLIMUS
     Dosage: UNK UNK, PM (APPLY AT NIGHT TO FACE)
     Dates: start: 20250319
  69. HYALURONATE SODIUM\TREHALOSE [Concomitant]
     Active Substance: HYALURONATE SODIUM\TREHALOSE
     Indication: Ill-defined disorder
     Dosage: 2 GTT DROPS, QID (ONE DROP BOTH EYES FOUR TIMES DAILY)
     Dates: start: 20250319
  70. HYALURONATE SODIUM\TREHALOSE [Concomitant]
     Active Substance: HYALURONATE SODIUM\TREHALOSE
     Dosage: 2 GTT DROPS, QID (ONE DROP BOTH EYES FOUR TIMES DAILY)
     Route: 065
     Dates: start: 20250319
  71. HYALURONATE SODIUM\TREHALOSE [Concomitant]
     Active Substance: HYALURONATE SODIUM\TREHALOSE
     Dosage: 2 GTT DROPS, QID (ONE DROP BOTH EYES FOUR TIMES DAILY)
     Route: 065
     Dates: start: 20250319
  72. HYALURONATE SODIUM\TREHALOSE [Concomitant]
     Active Substance: HYALURONATE SODIUM\TREHALOSE
     Dosage: 2 GTT DROPS, QID (ONE DROP BOTH EYES FOUR TIMES DAILY)
     Dates: start: 20250319
  73. Xailin night [Concomitant]
     Indication: Ill-defined disorder
     Dosage: UNK, PM (1CM TO BOTH EYES AT NIGHT)
     Dates: start: 20250319
  74. Xailin night [Concomitant]
     Dosage: UNK, PM (1CM TO BOTH EYES AT NIGHT)
     Route: 065
     Dates: start: 20250319
  75. Xailin night [Concomitant]
     Dosage: UNK, PM (1CM TO BOTH EYES AT NIGHT)
     Route: 065
     Dates: start: 20250319
  76. Xailin night [Concomitant]
     Dosage: UNK, PM (1CM TO BOTH EYES AT NIGHT)
     Dates: start: 20250319
  77. ACETAMINOPHEN\CODEINE PHOSPHATE [Concomitant]
     Active Substance: ACETAMINOPHEN\CODEINE PHOSPHATE
     Indication: Ill-defined disorder
     Dosage: UNK, QID (TAKE 1 OR 2 4 TIMES/DAY WHEN NEEDED FOR PAIN)
     Dates: start: 20250319
  78. ACETAMINOPHEN\CODEINE PHOSPHATE [Concomitant]
     Active Substance: ACETAMINOPHEN\CODEINE PHOSPHATE
     Indication: Pain
     Dosage: UNK, QID (TAKE 1 OR 2 4 TIMES/DAY WHEN NEEDED FOR PAIN)
     Route: 065
     Dates: start: 20250319
  79. ACETAMINOPHEN\CODEINE PHOSPHATE [Concomitant]
     Active Substance: ACETAMINOPHEN\CODEINE PHOSPHATE
     Dosage: UNK, QID (TAKE 1 OR 2 4 TIMES/DAY WHEN NEEDED FOR PAIN)
     Route: 065
     Dates: start: 20250319
  80. ACETAMINOPHEN\CODEINE PHOSPHATE [Concomitant]
     Active Substance: ACETAMINOPHEN\CODEINE PHOSPHATE
     Dosage: UNK, QID (TAKE 1 OR 2 4 TIMES/DAY WHEN NEEDED FOR PAIN)
     Dates: start: 20250319

REACTIONS (1)
  - Headache [Recovered/Resolved]
